FAERS Safety Report 10273483 (Version 1)
Quarter: 2014Q1

REPORT INFORMATION
  Report Type: Spontaneous
  Country: US (occurrence: None)
  Receive Date: 20140306
  Receipt Date: 20140306
  Transmission Date: 20141002
  Serious: Yes (Disabling)
  Sender: FDA-Public Use
  Company Number: 163-21880-13082311

PATIENT
  Age: 75 Year
  Sex: Female

DRUGS (11)
  1. REVLIMID [Suspect]
     Indication: PLASMA CELL MYELOMA
     Route: 048
     Dates: start: 20120926
  2. AMBIEN (ZOLPIDEM TARTRATE) [Concomitant]
  3. ASPIRIN (ACETYLSALICYLIC ACID) [Concomitant]
  4. BENADRYL (DIPHENHYDRAMINE) [Concomitant]
  5. CRESTOR (ROSUVASTATIN) [Concomitant]
  6. MAGNESIUM [Concomitant]
  7. METOPROLOL TARTRATE [Concomitant]
  8. NEXIUM (ESOMEPRAZOLE) [Concomitant]
  9. RANITIDINE HCL (RANITIDINE HYDROCHLORIDE) [Concomitant]
  10. VELCADE (BORTEZOMIB) [Concomitant]
  11. DECADRON (DEXAMETHASONE) [Concomitant]

REACTIONS (1)
  - Plasma cell myeloma [None]
